FAERS Safety Report 12667253 (Version 1)
Quarter: 2016Q3

REPORT INFORMATION
  Report Type: Spontaneous
  Country: US (occurrence: None)
  Receive Date: 20160818
  Receipt Date: 20160818
  Transmission Date: 20161109
  Serious: No
  Sender: FDA-Public Use
  Company Number: None

PATIENT
  Age: 74 Year
  Sex: Female

DRUGS (1)
  1. DEPO-ESTRADIOL [Suspect]
     Active Substance: ESTRADIOL CYPIONATE
     Route: 030
     Dates: start: 20160816, end: 20160816

REACTIONS (3)
  - Feeling abnormal [None]
  - Product physical consistency issue [None]
  - Dysgeusia [None]

NARRATIVE: CASE EVENT DATE: 20160816
